FAERS Safety Report 21315111 (Version 1)
Quarter: 2022Q3

REPORT INFORMATION
  Report Type: Spontaneous
  Country: ES (occurrence: ES)
  Receive Date: 20220909
  Receipt Date: 20220909
  Transmission Date: 20221027
  Serious: Yes (Other)
  Sender: FDA-Public Use
  Company Number: None

PATIENT
  Age: 60 Year
  Sex: Female

DRUGS (3)
  1. PRISTIQ EXTENDED-RELEASE [Suspect]
     Active Substance: DESVENLAFAXINE SUCCINATE
     Indication: Adjustment disorder with anxiety
     Dosage: 50MG 1X/DAY
     Route: 048
     Dates: start: 20220726, end: 20220821
  2. LORAZEPAM [Concomitant]
     Active Substance: LORAZEPAM
     Dosage: 1MG  1X/DAY
     Route: 048
     Dates: start: 20220726
  3. FLUTICASONE FUROATE [Concomitant]
     Active Substance: FLUTICASONE FUROATE
     Dosage: 27.5 UG, EVERY 6 HOURS
     Route: 045
     Dates: start: 20220805

REACTIONS (3)
  - Pruritus [Recovered/Resolved]
  - Urticaria [Recovered/Resolved]
  - Off label use [Unknown]

NARRATIVE: CASE EVENT DATE: 20220726
